FAERS Safety Report 5238094-6 (Version None)
Quarter: 2007Q1

REPORT INFORMATION
  Report Type: 
  Country: None (occurrence: None)
  Receive Date: 20070215
  Receipt Date: 20070205
  Transmission Date: 20070707
  Serious: Yes (Other)
  Sender: FDA-Public Use
  Company Number: FR-JNJFOC-20070200887

PATIENT
  Age: 45 Year
  Sex: Male

DRUGS (3)
  1. TAVANIC [Suspect]
     Indication: SIGMOIDITIS
     Route: 048
  2. FLAGYL [Suspect]
     Indication: SIGMOIDITIS
     Route: 048
  3. PARACETAMOL [Concomitant]
     Indication: SIGMOIDITIS

REACTIONS (2)
  - MIXED HEPATOCELLULAR-CHOLESTATIC INJURY [None]
  - TENDONITIS [None]
